FAERS Safety Report 19592730 (Version 1)
Quarter: 2021Q3

REPORT INFORMATION
  Report Type: Spontaneous
  Country: US (occurrence: US)
  Receive Date: 20210721
  Receipt Date: 20210721
  Transmission Date: 20211014
  Serious: Yes (Death)
  Sender: FDA-Public Use
  Company Number: None

PATIENT
  Age: 54 Year
  Sex: Female

DRUGS (12)
  1. IBUPROFEN. [Concomitant]
     Active Substance: IBUPROFEN
  2. LETROZOLE 2.5MG TAB [Suspect]
     Active Substance: LETROZOLE
     Indication: OVARIAN CANCER
     Route: 048
     Dates: start: 20201007
  3. ONDANSETRON [Concomitant]
     Active Substance: ONDANSETRON
  4. REPAGLINIDE. [Concomitant]
     Active Substance: REPAGLINIDE
  5. ROSUVASTATIN. [Concomitant]
     Active Substance: ROSUVASTATIN
  6. ACETAMINOPHEN. [Concomitant]
     Active Substance: ACETAMINOPHEN
  7. GABAPENTIN. [Concomitant]
     Active Substance: GABAPENTIN
  8. LANTUS [Concomitant]
     Active Substance: INSULIN GLARGINE
  9. HEPARIN [Concomitant]
     Active Substance: HEPARIN SODIUM
  10. INSULIN [Concomitant]
     Active Substance: INSULIN NOS
  11. BUPROPION. [Concomitant]
     Active Substance: BUPROPION
  12. MIRTAZAPINE. [Concomitant]
     Active Substance: MIRTAZAPINE

REACTIONS (1)
  - Death [None]

NARRATIVE: CASE EVENT DATE: 20210707
